FAERS Safety Report 9525491 (Version 1)
Quarter: 2013Q1

REPORT INFORMATION
  Report Type: Spontaneous
  Country: US (occurrence: None)
  Receive Date: 20130305
  Receipt Date: 20130305
  Transmission Date: 20140127
  Serious: Yes (Disabling)
  Sender: FDA-Public Use
  Company Number: 163-21880-12012889

PATIENT
  Age: 78 Year
  Sex: Male

DRUGS (9)
  1. REVLIMID (LENALIDOMIDE) (CAPSULES) [Suspect]
     Indication: PLASMA CELL MYELOMA
     Route: 048
     Dates: start: 20100406
  2. HYDROCODONE-ACETAMINOPHEN (VICODIN) (UNKNOWN) [Concomitant]
  3. LEVOTHYROXINE SODIUM (LEVOTHYROXINE SODIUM) (UNKNOWN) [Concomitant]
  4. TOPROL XL (METOPROLOL SUCCINATE) (UNKNOWN) [Concomitant]
  5. PRILOSEC (OMEPRAZOLE) (UNKNOWN) [Concomitant]
  6. SIMVASTATIN SIMVASTATIN) (UNKNOWN) [Concomitant]
  7. SPIRONOLACTONE (SPIRONOLACTONE) (UNKNOWN) [Concomitant]
  8. COUMADIN (WARFARIN SODIUM) (UNKNOWN) [Concomitant]
  9. LASIX (FUROSEMIDE) (UNKNOWN) [Concomitant]

REACTIONS (1)
  - Rash pruritic [None]
